FAERS Safety Report 20081641 (Version 5)
Quarter: 2022Q3

REPORT INFORMATION
  Report Type: Spontaneous
  Country: US (occurrence: US)
  Receive Date: 20211117
  Receipt Date: 20220802
  Transmission Date: 20221026
  Serious: Yes (Other)
  Sender: FDA-Public Use
  Company Number: US-PFIZER INC-202101484062

PATIENT
  Age: 71 Year
  Sex: Female
  Weight: 82.55 kg

DRUGS (2)
  1. XELJANZ XR [Suspect]
     Active Substance: TOFACITINIB CITRATE
     Indication: Psoriatic arthropathy
     Dosage: 11 MG, 1X/DAY
     Route: 048
     Dates: end: 20210903
  2. XELJANZ XR [Suspect]
     Active Substance: TOFACITINIB CITRATE
     Indication: Osteoarthritis

REACTIONS (10)
  - Postoperative wound infection [Unknown]
  - Wound [Not Recovered/Not Resolved]
  - Knee operation [Unknown]
  - Shoulder arthroplasty [Unknown]
  - Rotator cuff syndrome [Unknown]
  - Spinal operation [Unknown]
  - Sciatica [Unknown]
  - Nerve injury [Unknown]
  - Hypoaesthesia [Not Recovered/Not Resolved]
  - Oedema peripheral [Not Recovered/Not Resolved]

NARRATIVE: CASE EVENT DATE: 20180101
